FAERS Safety Report 10933215 (Version 1)
Quarter: 2015Q1

REPORT INFORMATION
  Report Type: Spontaneous
  Country: US (occurrence: US)
  Receive Date: 20150320
  Receipt Date: 20150320
  Transmission Date: 20150721
  Serious: Yes (Hospitalization)
  Sender: FDA-Public Use
  Company Number: US-SUN PHARMACEUTICAL INDUSTRIES LTD-2015SUN00715

PATIENT
  Age: 71 Year
  Sex: Male

DRUGS (2)
  1. PREDNISONE. [Concomitant]
     Active Substance: PREDNISONE
     Indication: MYELODYSPLASTIC SYNDROME
  2. DECITABINE FOR INJECTION, 50 MG/VIAL [Suspect]
     Active Substance: DECITABINE
     Indication: MYELODYSPLASTIC SYNDROME
     Dosage: FOR 1 YEAR; COMPLETED LAST CYCLE 2 WEEKS BEFORE ONSET OF SYMPTOMS
     Route: 065

REACTIONS (3)
  - Treatment failure [None]
  - Acute respiratory distress syndrome [Recovering/Resolving]
  - Organising pneumonia [Recovering/Resolving]
